FAERS Safety Report 8199664-9 (Version None)
Quarter: 2012Q1

REPORT INFORMATION
  Report Type: 
  Country: None (occurrence: None)
  Receive Date: 20120311
  Receipt Date: 20120229
  Transmission Date: 20120608
  Serious: Yes (Other)
  Sender: FDA-Public Use
  Company Number: US-ASTRAZENECA-2012SE14366

PATIENT
  Age: 67 Year
  Sex: Female

DRUGS (2)
  1. ATACAND [Suspect]
     Dosage: GENERIC
     Route: 048
  2. ATACAND [Suspect]
     Route: 048

REACTIONS (6)
  - DRUG DOSE OMISSION [None]
  - MALAISE [None]
  - TRANSIENT ISCHAEMIC ATTACK [None]
  - ROAD TRAFFIC ACCIDENT [None]
  - JOINT SWELLING [None]
  - EYE SWELLING [None]
